FAERS Safety Report 9420163 (Version 1)
Quarter: 2013Q3

REPORT INFORMATION
  Report Type: Spontaneous
  Country: GB (occurrence: GB)
  Receive Date: 20130725
  Receipt Date: 20130725
  Transmission Date: 20140515
  Serious: Yes (Life-Threatening, Hospitalization)
  Sender: FDA-Public Use
  Company Number: GB-ASTRAZENECA-2013SE55095

PATIENT
  Age: 66 Year
  Sex: Female
  Weight: 59.8 kg

DRUGS (15)
  1. ZAFIRLUKAST [Suspect]
     Route: 048
     Dates: end: 20130627
  2. OMEPRAZOLE [Suspect]
     Route: 048
     Dates: end: 20130627
  3. TRIFLUOPERAZINE [Suspect]
     Route: 048
     Dates: end: 20130627
  4. SYMBICORT [Concomitant]
     Dosage: 1 DF TWO TIMES A DAY
     Route: 055
  5. CARBOCISTEINE [Concomitant]
     Route: 048
  6. CHLORHEXIDINE GLUCONATE [Concomitant]
     Route: 061
  7. DOSULEPIN [Concomitant]
     Route: 048
     Dates: start: 20130626
  8. DOSULEPIN [Concomitant]
     Route: 048
  9. FERROUS SULPHATE [Concomitant]
     Route: 048
  10. LEVOTHYROXINE [Concomitant]
     Route: 048
  11. METHYLCELLULOSE [Concomitant]
     Route: 048
  12. OLANZAPINE [Concomitant]
     Route: 048
     Dates: end: 20130626
  13. SALBUTAMOL [Concomitant]
     Route: 048
  14. TEMAZEPAM [Concomitant]
     Route: 048
  15. UNIPHYLLIN CONTINUS [Concomitant]
     Route: 048

REACTIONS (1)
  - Pancytopenia [Recovered/Resolved]
